FAERS Safety Report 7197512-7 (Version None)
Quarter: 2010Q4

REPORT INFORMATION
  Report Type: 
  Country: None (occurrence: None)
  Receive Date: 20101227
  Receipt Date: 20101221
  Transmission Date: 20110411
  Serious: Yes (Death, Other)
  Sender: FDA-Public Use
  Company Number: CA-ASTELLAS-2010US005199

PATIENT

DRUGS (4)
  1. PROGRAF [Suspect]
     Indication: LUNG TRANSPLANT
     Dosage: UNK
     Route: 065
  2. CYCLOSPORINE [Suspect]
     Indication: LUNG TRANSPLANT
     Dosage: 5 MG/KG, BID
     Route: 048
  3. AZATHIOPRINE [Concomitant]
     Indication: LUNG TRANSPLANT
     Dosage: U
     Route: 065
  4. PREDNISONE [Concomitant]
     Indication: LUNG TRANSPLANT
     Dosage: 0.5 MG/KG, UID/QD
     Route: 065

REACTIONS (3)
  - COLON CANCER METASTATIC [None]
  - DRUG TOXICITY [None]
  - RENAL FAILURE CHRONIC [None]
